FAERS Safety Report 6335742-4 (Version None)
Quarter: 2009Q3

REPORT INFORMATION
  Report Type: 
  Country: None (occurrence: None)
  Receive Date: 20090828
  Receipt Date: 20090820
  Transmission Date: 20100115
  Serious: Yes (Other)
  Sender: FDA-Public Use
  Company Number: TRP_06387_2009

PATIENT
  Sex: Female

DRUGS (4)
  1. RIBASPHERE [Suspect]
     Indication: HEPATITIS C
     Dosage: DF
     Dates: start: 20090720
  2. PEG-INTRON [Suspect]
     Indication: HEPATITIS C
     Dosage: DF SUBCUTANEOUS
     Route: 058
     Dates: start: 20090720
  3. LAMICTAL [Concomitant]
  4. LEXAPRO [Concomitant]

REACTIONS (7)
  - BACTERIAL INFECTION [None]
  - BRONCHITIS [None]
  - CHAPPED LIPS [None]
  - CHILLS [None]
  - DEHYDRATION [None]
  - DYSPNOEA [None]
  - WHITE BLOOD CELL COUNT DECREASED [None]
